FAERS Safety Report 10004026 (Version 1)
Quarter: 2014Q1

REPORT INFORMATION
  Report Type: Spontaneous
  Country: JP (occurrence: JP)
  Receive Date: 20140312
  Receipt Date: 20140312
  Transmission Date: 20141002
  Serious: Yes (Death, Other)
  Sender: FDA-Public Use
  Company Number: JP-SPECTRUM PHARMACEUTICALS, INC.-14-F-JP-00035

PATIENT
  Sex: 0

DRUGS (6)
  1. FLUOROURACIL [Suspect]
     Indication: OESOPHAGEAL SQUAMOUS CELL CARCINOMA
     Dosage: 400 MG/M2/DAY ON DAYS 1-5 AND 8-12
     Route: 042
  2. FLUOROURACIL [Suspect]
     Dosage: 700MG/M2/DAY ON DAYS 1-4
     Route: 042
  3. FLUOROURACIL [Suspect]
     Dosage: 1000 MG/M2/DAY ON DAYS 1-4
     Route: 042
  4. CISPLATIN [Suspect]
     Indication: OESOPHAGEAL SQUAMOUS CELL CARCINOMA
     Dosage: 40 MG/M2 ON DAYS 1 AND 8
     Route: 042
  5. CISPLATIN [Suspect]
     Dosage: 70 MG/M2 ON DAY1
     Route: 042
  6. CISPLATIN [Suspect]
     Dosage: 75MG/M2 ON DAY1
     Route: 042

REACTIONS (5)
  - Pneumonitis [Fatal]
  - Pleural effusion [None]
  - Radiation pneumonitis [None]
  - Oesophagitis [None]
  - Pericarditis [None]
